FAERS Safety Report 4643453-6 (Version None)
Quarter: 2005Q2

REPORT INFORMATION
  Report Type: 
  Country: None (occurrence: None)
  Receive Date: 20050323
  Receipt Date: 20040130
  Transmission Date: 20051028
  Serious: Yes (Hospitalization)
  Sender: FDA-Public Use
  Company Number: K200400134

PATIENT
  Age: 46 Year
  Sex: Male
  Weight: 108.8 kg

DRUGS (5)
  1. ALTACE [Suspect]
     Indication: PROPHYLAXIS
     Dosage: 5 MG, QD, ORAL
     Route: 048
     Dates: start: 20040112, end: 20040129
  2. IMDUR [Concomitant]
  3. TOPROL (METOPROLOL SUCCINATE) [Concomitant]
  4. PLAVIX [Concomitant]
  5. ASPIRIN [Concomitant]

REACTIONS (6)
  - ANGIONEUROTIC OEDEMA [None]
  - EYE SWELLING [None]
  - OEDEMA PERIPHERAL [None]
  - OESOPHAGEAL DISORDER [None]
  - SWELLING FACE [None]
  - URTICARIA [None]
